FAERS Safety Report 20336281 (Version 1)
Quarter: 2022Q1

REPORT INFORMATION
  Report Type: Spontaneous
  Country: US (occurrence: None)
  Receive Date: 20220114
  Receipt Date: 20220114
  Transmission Date: 20220423
  Serious: Yes (Death)
  Sender: FDA-Public Use
  Company Number: None

PATIENT
  Age: 82 Year
  Sex: Male

DRUGS (6)
  1. PROMACTA [Suspect]
     Active Substance: ELTROMBOPAG OLAMINE
     Route: 048
     Dates: start: 20180504
  2. ASPIRIN LOW TAB [Concomitant]
  3. CARVEDILOL [Concomitant]
  4. MULTIVITAMIN [Concomitant]
  5. PRAVASTATIN TAB [Concomitant]
  6. TEKTURNA HCT [Concomitant]

REACTIONS (1)
  - Death [None]

NARRATIVE: CASE EVENT DATE: 20211203
